FAERS Safety Report 14211151 (Version 2)
Quarter: 2018Q3

REPORT INFORMATION
  Report Type: Spontaneous
  Country: IT (occurrence: IT)
  Receive Date: 20171121
  Receipt Date: 20180725
  Transmission Date: 20181010
  Serious: Yes (Other)
  Sender: FDA-Public Use
  Company Number: IT-SA-2017SA224323

PATIENT
  Sex: Female

DRUGS (5)
  1. IRBESARTAN. [Suspect]
     Active Substance: IRBESARTAN
     Indication: HYPERTENSION
     Dosage: 0.25 DF, TOTAL
     Route: 048
     Dates: start: 20171004, end: 20171004
  2. CARDICOR [Concomitant]
     Active Substance: BISOPROLOL
     Dosage: UNK UNK,UNK
     Route: 048
  3. LANSOPRAZOLE. [Concomitant]
     Active Substance: LANSOPRAZOLE
     Dosage: UNK UNK,UNK
     Route: 048
  4. LIXIANA [Concomitant]
     Active Substance: EDOXABAN TOSYLATE
     Dosage: UNK UNK,UNK
     Route: 048
  5. IRBESARTAN. [Suspect]
     Active Substance: IRBESARTAN
     Dosage: .25 DF,TOTAL
     Route: 048
     Dates: end: 20171004

REACTIONS (4)
  - Loss of consciousness [Recovering/Resolving]
  - Syncope [Recovering/Resolving]
  - Hyperhidrosis [Recovering/Resolving]
  - Pallor [Recovering/Resolving]
